FAERS Safety Report 17253938 (Version 1)
Quarter: 2020Q1

REPORT INFORMATION
  Report Type: Spontaneous
  Country: SE (occurrence: SE)
  Receive Date: 20200109
  Receipt Date: 20200109
  Transmission Date: 20200409
  Serious: Yes (Hospitalization, Other)
  Sender: FDA-Public Use
  Company Number: SE-SA-2020SA001346

PATIENT
  Sex: Female

DRUGS (2)
  1. TOUJEO [Suspect]
     Active Substance: INSULIN GLARGINE
     Indication: TYPE 2 DIABETES MELLITUS
     Dosage: 60 IU, UNK
     Route: 065
     Dates: start: 201801, end: 201912
  2. TRAJENTA [Concomitant]
     Active Substance: LINAGLIPTIN
     Dosage: UNK, DICONTINUED AT HOSPITAL
     Route: 065
     Dates: start: 20190125, end: 201912

REACTIONS (3)
  - Renal failure [Unknown]
  - Unevaluable event [Recovering/Resolving]
  - Intestinal mass [Unknown]
